FAERS Safety Report 7448337-6 (Version None)
Quarter: 2011Q2

REPORT INFORMATION
  Report Type: 
  Country: None (occurrence: None)
  Receive Date: 20110429
  Receipt Date: 20100511
  Transmission Date: 20111010
  Serious: No
  Sender: FDA-Public Use
  Company Number: US-ASTRAZENECA-2010SE21505

PATIENT
  Age: 459 Month
  Sex: Female
  Weight: 93 kg

DRUGS (4)
  1. SINGULAIR [Concomitant]
  2. ALLEGRA [Concomitant]
  3. NEXIUM [Suspect]
     Indication: GASTROOESOPHAGEAL REFLUX DISEASE
     Route: 048
     Dates: start: 20100501
  4. PREDNISONE [Suspect]

REACTIONS (4)
  - MUSCLE TIGHTNESS [None]
  - GASTROOESOPHAGEAL REFLUX DISEASE [None]
  - CHEST DISCOMFORT [None]
  - ERUCTATION [None]
